FAERS Safety Report 6532217-4 (Version None)
Quarter: 2010Q1

REPORT INFORMATION
  Report Type: 
  Country: None (occurrence: None)
  Receive Date: 20100108
  Receipt Date: 20091229
  Transmission Date: 20100710
  Serious: Yes (Other)
  Sender: FDA-Public Use
  Company Number: FR-ROCHE-677204

PATIENT
  Sex: Female

DRUGS (4)
  1. XELODA [Suspect]
     Indication: DRUG USE FOR UNKNOWN INDICATION
     Route: 048
     Dates: start: 20090909, end: 20090918
  2. FLUOROURACIL [Concomitant]
  3. OXALIPLATINE [Concomitant]
  4. GEMZAR [Concomitant]

REACTIONS (4)
  - DIARRHOEA [None]
  - EOSINOPHIL COUNT INCREASED [None]
  - PYREXIA [None]
  - VULVOVAGINAL PRURITUS [None]
